FAERS Safety Report 13343148 (Version 1)
Quarter: 2017Q1

REPORT INFORMATION
  Report Type: Spontaneous
  Country: US (occurrence: US)
  Receive Date: 20170316
  Receipt Date: 20170316
  Transmission Date: 20170428
  Serious: No
  Sender: FDA-Public Use
  Company Number: US-ALLERGAN-1660801US

PATIENT
  Age: 29 Year
  Sex: Male

DRUGS (4)
  1. OZURDEX [Suspect]
     Active Substance: DEXAMETHASONE
     Indication: UVEITIS
     Dosage: 0.7 MG, SINGLE
     Route: 031
     Dates: start: 20160617
  2. TIMOLOL MALEATE. [Concomitant]
     Active Substance: TIMOLOL MALEATE
     Indication: OCULAR HYPERTENSION
     Dosage: UNK UNK, QD
  3. ATROPINE. [Concomitant]
     Active Substance: ATROPINE
     Indication: OCULAR HYPERTENSION
     Dosage: UNK UNK, QD
  4. DUREZOL [Concomitant]
     Active Substance: DIFLUPREDNATE
     Indication: OCULAR HYPERTENSION
     Dosage: UNK UNK, QD

REACTIONS (2)
  - Complication of device insertion [Recovered/Resolved]
  - Product quality issue [Unknown]

NARRATIVE: CASE EVENT DATE: 20160617
